FAERS Safety Report 14149875 (Version 2)
Quarter: 2017Q4

REPORT INFORMATION
  Report Type: Spontaneous
  Country: JP (occurrence: JP)
  Receive Date: 20171101
  Receipt Date: 20171103
  Transmission Date: 20180321
  Serious: Yes (Life-Threatening, Other)
  Sender: FDA-Public Use
  Company Number: JP-ASTRAZENECA-2017SF08513

PATIENT
  Age: 55 Year
  Sex: Male
  Weight: 55 kg

DRUGS (6)
  1. NEXIUM [Suspect]
     Active Substance: ESOMEPRAZOLE MAGNESIUM
     Indication: GASTROOESOPHAGEAL REFLUX DISEASE
     Route: 048
     Dates: start: 20121108, end: 20170925
  2. CALBLOCK [Concomitant]
     Active Substance: AZELNIDIPINE
     Dosage: 16MG, UNKNOWN AFTER BREAKFAST
     Route: 048
  3. NEXIUM [Suspect]
     Active Substance: ESOMEPRAZOLE MAGNESIUM
     Indication: GASTROOESOPHAGEAL REFLUX DISEASE
     Dosage: 10 MG FOR SOME PERIOD OF TIME
     Route: 048
  4. OMEPRAL [Suspect]
     Active Substance: OMEPRAZOLE
     Indication: GASTROOESOPHAGEAL REFLUX DISEASE
     Dosage: 20.0MG UNKNOWN
     Route: 048
  5. MICOMBI [Suspect]
     Active Substance: HYDROCHLOROTHIAZIDE\TELMISARTAN
     Dosage: 1 DF, UNKNOWN AFTER BREAKFAST
     Route: 048
     Dates: end: 20160830
  6. OMEPRAL [Suspect]
     Active Substance: OMEPRAZOLE
     Indication: GASTROOESOPHAGEAL REFLUX DISEASE
     Dosage: 10.0MG UNKNOWN
     Route: 048
     Dates: start: 20071220, end: 20121107

REACTIONS (4)
  - Hypomagnesaemia [Recovered/Resolved]
  - Pseudohypoparathyroidism [Unknown]
  - Hypocalcaemia [Recovered/Resolved]
  - Hypokalaemia [Recovered/Resolved]

NARRATIVE: CASE EVENT DATE: 20150317
